FAERS Safety Report 11629812 (Version 6)
Quarter: 2016Q1

REPORT INFORMATION
  Report Type: Report from Study
  Country: US (occurrence: US)
  Receive Date: 20151014
  Receipt Date: 20160129
  Transmission Date: 20160525
  Serious: No
  Sender: FDA-Public Use
  Company Number: PHEH2015US020327

PATIENT
  Age: 55 Year
  Sex: Male

DRUGS (4)
  1. EXTAVIA [Suspect]
     Active Substance: INTERFERON BETA-1B
     Dosage: 0.187 MG, (0.75 ML), QOD (WEEK 5-6)
     Route: 058
  2. EXTAVIA [Suspect]
     Active Substance: INTERFERON BETA-1B
     Dosage: 0.25 MG,(1 ML), QOD (WEEK 7+)
     Route: 058
  3. EXTAVIA [Suspect]
     Active Substance: INTERFERON BETA-1B
     Indication: MULTIPLE SCLEROSIS
     Dosage: 0.0625 MG (0.25 ML), QOD (WEEKS 1-2)
     Route: 058
     Dates: start: 20150922
  4. EXTAVIA [Suspect]
     Active Substance: INTERFERON BETA-1B
     Dosage: 0.125 MG (0.5 ML), QOD, (WEEKS 3-4)
     Route: 058

REACTIONS (16)
  - Dizziness [Unknown]
  - Fatigue [Unknown]
  - Diarrhoea [Unknown]
  - Nausea [Unknown]
  - Back pain [Unknown]
  - Eye pain [Unknown]
  - Asthenia [Unknown]
  - Apathy [Not Recovered/Not Resolved]
  - Hangover [Unknown]
  - Amnesia [Not Recovered/Not Resolved]
  - Spinal pain [Unknown]
  - Headache [Unknown]
  - Temperature intolerance [Unknown]
  - Pain [Unknown]
  - Hypertension [Unknown]
  - Epistaxis [Unknown]

NARRATIVE: CASE EVENT DATE: 20151012
